FAERS Safety Report 8722542 (Version 2)
Quarter: 2014Q2

REPORT INFORMATION
  Report Type: Spontaneous
  Country: CL (occurrence: CL)
  Receive Date: 20120814
  Receipt Date: 20140417
  Transmission Date: 20141212
  Serious: Yes (Hospitalization, Disabling)
  Sender: FDA-Public Use
  Company Number: CL-BIOMARINP-002822

PATIENT
  Sex: Female
  Weight: 19 kg

DRUGS (5)
  1. NAGLAZYME [Suspect]
     Indication: MUCOPOLYSACCHARIDOSIS VI
     Dosage: 15MG,QW
     Route: 041
     Dates: start: 200711
  2. CAPTOPRIL [Concomitant]
     Indication: PRODUCT USED FOR UNKNOWN INDICATION
  3. NIFEDIPINE [Concomitant]
     Indication: PRODUCT USED FOR UNKNOWN INDICATION
  4. SILDENAFIL [Concomitant]
     Indication: PRODUCT USED FOR UNKNOWN INDICATION
  5. NITROFURANTOIN [Concomitant]
     Indication: PRODUCT USED FOR UNKNOWN INDICATION

REACTIONS (5)
  - Foramen magnum stenosis [Recovering/Resolving]
  - Paresis [Recovering/Resolving]
  - Neurogenic bladder [Not Recovered/Not Resolved]
  - Incision site infection [Recovering/Resolving]
  - Fall [Unknown]
